FAERS Safety Report 6879286-X (Version None)
Quarter: 2010Q3

REPORT INFORMATION
  Report Type: 
  Country: None (occurrence: None)
  Receive Date: 20100728
  Receipt Date: 20100719
  Transmission Date: 20110219
  Serious: Yes (Hospitalization)
  Sender: FDA-Public Use
  Company Number: US-SANOFI-AVENTIS-2010SA042205

PATIENT
  Age: 79 Year
  Sex: Male

DRUGS (1)
  1. MULTAQ [Suspect]
     Indication: ATRIAL FIBRILLATION
     Route: 048
     Dates: start: 20100413

REACTIONS (4)
  - ASTHENIA [None]
  - FLUID RETENTION [None]
  - ILL-DEFINED DISORDER [None]
  - WEIGHT INCREASED [None]
